FAERS Safety Report 6722653-5 (Version None)
Quarter: 2010Q2

REPORT INFORMATION
  Report Type: 
  Country: None (occurrence: None)
  Receive Date: 20100512
  Receipt Date: 20090716
  Transmission Date: 20101027
  Serious: Yes (Hospitalization)
  Sender: FDA-Public Use
  Company Number: BR-PFIZER INC-2009189013

PATIENT
  Age: 79 Year
  Sex: Female
  Weight: 43 kg

DRUGS (8)
  1. CP-751,871 [Suspect]
     Indication: BREAST CANCER
     Dosage: 860 MG, EVERY 3 WEEKS
     Route: 042
     Dates: start: 20090119
  2. EXEMESTANE [Suspect]
     Indication: BREAST CANCER
     Dosage: 25 MG, 1X/DAY
     Route: 048
     Dates: start: 20090119
  3. CAPTOPRIL [Concomitant]
     Dosage: UNK
     Route: 048
     Dates: start: 20060701
  4. HYDROCHLOROTHIAZIDE [Concomitant]
     Dosage: UNK
     Route: 048
     Dates: start: 19880701
  5. METFORMIN [Concomitant]
     Dosage: UNK
     Route: 048
     Dates: start: 20030701
  6. GLIBENCLAMIDE [Concomitant]
     Dosage: UNK
     Route: 048
     Dates: start: 19880701
  7. HYDROCORTISONE [Concomitant]
     Dosage: UNK
     Route: 047
     Dates: start: 20090204
  8. HIDROXIZIN [Concomitant]
     Dosage: UNK
     Route: 048
     Dates: start: 20090209, end: 20090315

REACTIONS (7)
  - CONSTIPATION [None]
  - DEHYDRATION [None]
  - DIABETES MELLITUS [None]
  - HYPERCALCAEMIA [None]
  - HYPOKALAEMIA [None]
  - HYPOMAGNESAEMIA [None]
  - SENSORY LOSS [None]
